FAERS Safety Report 7376078-2 (Version None)
Quarter: 2011Q1

REPORT INFORMATION
  Report Type: 
  Country: None (occurrence: None)
  Receive Date: 20110317
  Receipt Date: 20110308
  Transmission Date: 20110831
  Serious: Yes (Other)
  Sender: FDA-Public Use
  Company Number: 2010JP005968

PATIENT
  Age: 43 Year
  Sex: Female
  Weight: 51.8 kg

DRUGS (12)
  1. LIPITOR [Concomitant]
  2. TAKEPRON (LANSOPRAZOLE) [Concomitant]
  3. FOSAMAX [Concomitant]
  4. TACROLIMUS [Suspect]
     Indication: LUPUS NEPHRITIS
     Dosage: 1.5 MG, /D, ORAL; 1 MG /D, ORAL; 2 MG, /D, ORAL
     Route: 048
     Dates: start: 20091113, end: 20091224
  5. TACROLIMUS [Suspect]
     Indication: LUPUS NEPHRITIS
     Dosage: 1.5 MG, /D, ORAL; 1 MG /D, ORAL; 2 MG, /D, ORAL
     Route: 048
     Dates: start: 20091225, end: 20100415
  6. TACROLIMUS [Suspect]
     Indication: LUPUS NEPHRITIS
     Dosage: 1.5 MG, /D, ORAL; 1 MG /D, ORAL; 2 MG, /D, ORAL
     Route: 048
     Dates: start: 20100416
  7. PREDONINE (PREDNISOLONE) PER ORAL NOS [Suspect]
     Indication: LUPUS NEPHRITIS
     Dosage: 50 MG, /D, ORAL; 15 MG, /D, ORAL, 8 MG, /D, ORAL
     Route: 048
     Dates: start: 20090401
  8. PREDONINE (PREDNISOLONE) PER ORAL NOS [Suspect]
     Indication: LUPUS NEPHRITIS
     Dosage: 50 MG, /D, ORAL; 15 MG, /D, ORAL, 8 MG, /D, ORAL
     Route: 048
     Dates: end: 20100805
  9. PREDONINE (PREDNISOLONE) PER ORAL NOS [Suspect]
     Indication: LUPUS NEPHRITIS
     Dosage: 50 MG, /D, ORAL; 15 MG, /D, ORAL, 8 MG, /D, ORAL
     Route: 048
     Dates: start: 20100806
  10. KETOPROFEN [Concomitant]
  11. EPADEL (ETHYL ICOSAPENTATE) [Concomitant]
  12. ISODINE (POVIDONE-IODINE) [Concomitant]

REACTIONS (1)
  - OSTEONECROSIS [None]
